FAERS Safety Report 10225076 (Version 3)
Quarter: 2015Q2

REPORT INFORMATION
  Report Type: Spontaneous
  Country: US (occurrence: US)
  Receive Date: 20140609
  Receipt Date: 20150424
  Transmission Date: 20150821
  Serious: Yes (Hospitalization, Other)
  Sender: FDA-Public Use
  Company Number: US-ALKERMES INC.-ALK-2014-003048

PATIENT

DRUGS (3)
  1. VIVITROL [Suspect]
     Active Substance: NALTREXONE
     Dosage: 380 MG, QMO
     Route: 030
     Dates: start: 201310, end: 201404
  2. VIVITROL [Suspect]
     Active Substance: NALTREXONE
     Dosage: 380 MG, QMO
     Route: 030
     Dates: start: 20140515, end: 20140515
  3. VIVITROL [Suspect]
     Active Substance: NALTREXONE
     Indication: ALCOHOLISM
     Dosage: 380 MG, QMO
     Route: 030
     Dates: start: 201303, end: 201306

REACTIONS (10)
  - Injection site swelling [Recovering/Resolving]
  - Pain in extremity [Recovered/Resolved]
  - Injection site pain [Recovering/Resolving]
  - Back pain [Recovered/Resolved]
  - Injection site abscess [Recovering/Resolving]
  - Injection site movement impairment [Recovered/Resolved]
  - Decreased appetite [Recovered/Resolved]
  - Abasia [Recovered/Resolved]
  - Injection site reaction [Recovering/Resolving]
  - Vomiting [Recovered/Resolved]

NARRATIVE: CASE EVENT DATE: 20140518
